FAERS Safety Report 21780916 (Version 1)
Quarter: 2022Q4

REPORT INFORMATION
  Report Type: Spontaneous
  Country: US (occurrence: US)
  Receive Date: 20221227
  Receipt Date: 20221227
  Transmission Date: 20230113
  Serious: No
  Sender: FDA-Public Use
  Company Number: US-TOLMAR, INC.-22US037861

PATIENT
  Age: 64 Year
  Sex: Male

DRUGS (1)
  1. KETOCONAZOLE [Suspect]
     Active Substance: KETOCONAZOLE
     Indication: Skin disorder
     Dosage: UNK
     Route: 003
     Dates: start: 202203, end: 20221212

REACTIONS (2)
  - Folliculitis [Not Recovered/Not Resolved]
  - Off label use [Unknown]
